FAERS Safety Report 6110025-6 (Version None)
Quarter: 2009Q1

REPORT INFORMATION
  Report Type: 
  Country: None (occurrence: None)
  Receive Date: 20090310
  Receipt Date: 20081209
  Transmission Date: 20090719
  Serious: No
  Sender: FDA-Public Use
  Company Number: A0759584A

PATIENT
  Age: 31 Year
  Sex: Female

DRUGS (1)
  1. COMMIT NICOTINE POLACRILEX CAPPUCCINO LOZENGE, 2MG [Suspect]
     Dates: start: 20081208, end: 20081208

REACTIONS (3)
  - INTENTIONAL DRUG MISUSE [None]
  - ORAL DISCOMFORT [None]
  - VOMITING [None]
